FAERS Safety Report 14948767 (Version 2)
Quarter: 2020Q2

REPORT INFORMATION
  Report Type: Spontaneous
  Country: US (occurrence: US)
  Receive Date: 20180529
  Receipt Date: 20200522
  Transmission Date: 20200713
  Serious: Yes (Death, Hospitalization, Disabling, Other)
  Sender: FDA-Public Use
  Company Number: US-009507513-1805USA013864

PATIENT
  Sex: Male
  Weight: 96 kg

DRUGS (8)
  1. BENADRYL [Concomitant]
     Active Substance: DIPHENHYDRAMINE HYDROCHLORIDE
     Indication: SEASONAL ALLERGY
     Dosage: UNK
     Dates: start: 2007, end: 201605
  2. CHONDROITIN (+) GLUCOSAMINE [Concomitant]
     Indication: ARTHRITIS
     Dosage: UNK
     Dates: start: 2007, end: 201605
  3. CALCIUM D (CALCIUM CARBONATE (+) CALCIUM CITRATE (+) CHOLECALCIFEROL) [Concomitant]
     Indication: ROUTINE HEALTH MAINTENANCE
     Dosage: UNK
     Dates: start: 2007, end: 2016
  4. VITAMINS (UNSPECIFIED) [Concomitant]
     Active Substance: VITAMINS
     Indication: ROUTINE HEALTH MAINTENANCE
     Dosage: UNK
     Dates: start: 2007, end: 201605
  5. ORIGIN CO Q-10 [Concomitant]
     Indication: ROUTINE HEALTH MAINTENANCE
     Dosage: UNK
     Dates: start: 2007, end: 201605
  6. OMEGA-3 MARINE TRIGLYCERIDES [Concomitant]
     Active Substance: FISH OIL
     Indication: CARDIAC DISORDER
     Dosage: UNK
     Dates: start: 2007, end: 201605
  7. JANUVIA [Suspect]
     Active Substance: SITAGLIPTIN PHOSPHATE
     Indication: TYPE 1 DIABETES MELLITUS
     Dosage: 100 MILLIGRAM, ONCE DAILY
     Route: 048
     Dates: start: 200903, end: 201211
  8. POTASSIUM (UNSPECIFIED) [Concomitant]
     Active Substance: POTASSIUM
     Indication: ROUTINE HEALTH MAINTENANCE
     Dosage: UNK
     Dates: start: 2007, end: 201605

REACTIONS (17)
  - Neuropathy peripheral [Unknown]
  - Blood glucose abnormal [Unknown]
  - Hypophagia [Unknown]
  - Erosive oesophagitis [Recovered/Resolved]
  - Asthenia [Unknown]
  - Mental status changes [Unknown]
  - Pancreatic neuroendocrine tumour metastatic [Fatal]
  - Dyspnoea [Unknown]
  - Adverse event [Unknown]
  - Shock [Recovered/Resolved]
  - Depression [Unknown]
  - Anaemia [Unknown]
  - Duodenal ulcer haemorrhage [Recovered/Resolved]
  - Chromaturia [Unknown]
  - Hypertension [Unknown]
  - Transient ischaemic attack [Recovered/Resolved]
  - Oxygen saturation decreased [Unknown]

NARRATIVE: CASE EVENT DATE: 201206
